FAERS Safety Report 19488193 (Version 3)
Quarter: 2022Q1

REPORT INFORMATION
  Report Type: Report from Study
  Country: GB (occurrence: GB)
  Receive Date: 20210702
  Receipt Date: 20220201
  Transmission Date: 20220423
  Serious: Yes (Other)
  Sender: FDA-Public Use
  Company Number: NVSC2021GB145790

PATIENT
  Age: 77 Year
  Sex: Male

DRUGS (2)
  1. LUTATHERA [Suspect]
     Active Substance: LUTETIUM OXODOTREOTIDE LU-177
     Indication: Neuroendocrine tumour
     Dosage: 4 CYCLES , 8 - 10 WEEKS APART
     Route: 042
     Dates: start: 20210331
  2. LUTATHERA [Suspect]
     Active Substance: LUTETIUM OXODOTREOTIDE LU-177
     Dosage: UNK (10 WEEKLY)
     Route: 042
     Dates: start: 20210420

REACTIONS (6)
  - Heart valve incompetence [Unknown]
  - Dyspnoea at rest [Not Recovered/Not Resolved]
  - Joint swelling [Unknown]
  - Appetite disorder [Unknown]
  - Pain in extremity [Unknown]
  - Oedema peripheral [Unknown]

NARRATIVE: CASE EVENT DATE: 20211013
